FAERS Safety Report 25901110 (Version 2)
Quarter: 2025Q4

REPORT INFORMATION
  Report Type: Spontaneous
  Country: CA (occurrence: CA)
  Receive Date: 20251009
  Receipt Date: 20251104
  Transmission Date: 20260118
  Serious: Yes (Other)
  Sender: TEVA
  Company Number: CA-TEVA-VS-3378758

PATIENT
  Age: 3 Year
  Sex: Female

DRUGS (12)
  1. VINCRISTINE [Suspect]
     Active Substance: VINCRISTINE
     Indication: Alveolar rhabdomyosarcoma
     Dosage: RECEIVED 3 CYCLES
     Route: 065
  2. THIOTEPA [Suspect]
     Active Substance: THIOTEPA
     Indication: Embryonal rhabdomyosarcoma
     Dosage: RECEIVED 1 CYCLE OF HIGH-DOSE OF THIOTEPA
     Route: 065
  3. THIOTEPA [Suspect]
     Active Substance: THIOTEPA
     Indication: Embryonal rhabdomyosarcoma
     Dosage: RECEIVED 3 CYCLES
     Route: 065
  4. CARBOPLATIN [Suspect]
     Active Substance: CARBOPLATIN
     Indication: Embryonal rhabdomyosarcoma
     Dosage: RECEIVED 1 CYCLE OF HIGH-DOSE OF CARBOPLATIN
     Route: 065
  5. CARBOPLATIN [Suspect]
     Active Substance: CARBOPLATIN
     Indication: Embryonal rhabdomyosarcoma
     Dosage: RECEIVED 3 CYCLES
     Route: 065
  6. ETOPOSIDE [Suspect]
     Active Substance: ETOPOSIDE
     Indication: Embryonal rhabdomyosarcoma
     Dosage: RECEIVED 3 CYCLES
     Route: 065
  7. ETOPOSIDE [Suspect]
     Active Substance: ETOPOSIDE
     Indication: Embryonal rhabdomyosarcoma
     Dosage: RECEIVED 1 CYCLE OF HIGH-DOSE OF ETOPOSIDE
     Route: 065
  8. CYCLOPHOSPHAMIDE [Suspect]
     Active Substance: CYCLOPHOSPHAMIDE
     Indication: Alveolar rhabdomyosarcoma
     Dosage: RECEIVED 3 CYCLES
     Route: 065
  9. CISPLATIN [Suspect]
     Active Substance: CISPLATIN
     Indication: Embryonal rhabdomyosarcoma
     Dosage: RECEIVED 3 CYCLES
     Route: 065
  10. IRINOTECAN [Suspect]
     Active Substance: IRINOTECAN
     Indication: Alveolar rhabdomyosarcoma
     Route: 065
  11. DACTINOMYCIN [Suspect]
     Active Substance: DACTINOMYCIN
     Indication: Alveolar rhabdomyosarcoma
     Route: 065
  12. DEXAMETHASONE [Concomitant]
     Active Substance: DEXAMETHASONE
     Indication: Evidence based treatment
     Route: 065

REACTIONS (8)
  - Febrile neutropenia [Unknown]
  - Optic atrophy [Unknown]
  - Anisometropia [Unknown]
  - Trismus [Unknown]
  - Eustachian tube dysfunction [Unknown]
  - Diarrhoea [Unknown]
  - Deafness neurosensory [Unknown]
  - Astigmatism [Unknown]
